FAERS Safety Report 4608407-4 (Version None)
Quarter: 2005Q1

REPORT INFORMATION
  Report Type: 
  Country: None (occurrence: None)
  Receive Date: 20050311
  Receipt Date: 20050301
  Transmission Date: 20050727
  Serious: Yes (Other)
  Sender: FDA-Public Use
  Company Number: GBWYE466601MAR05

PATIENT
  Age: 84 Year
  Sex: Female

DRUGS (4)
  1. EFFEXOR XR [Suspect]
     Dosage: SEE IMAGE
  2. ASPIRIN [Concomitant]
  3. ARICEPT [Concomitant]
  4. HYDROXYCARBAMIDE (HYDROXYCARBAMIDE) [Concomitant]

REACTIONS (3)
  - PARKINSONISM [None]
  - SUICIDAL IDEATION [None]
  - TARDIVE DYSKINESIA [None]
